FAERS Safety Report 18920856 (Version 2)
Quarter: 2021Q2

REPORT INFORMATION
  Report Type: Other
  Country: CA (occurrence: CA)
  Receive Date: 20210222
  Receipt Date: 20210512
  Transmission Date: 20210717
  Serious: Yes (Hospitalization, Other)
  Sender: FDA-Public Use
  Company Number: CA-APOTEX-2021AP003424

PATIENT
  Age: 44 Year
  Sex: Female

DRUGS (11)
  1. ARNUITY ELLIPTA [Suspect]
     Active Substance: FLUTICASONE FUROATE
     Indication: ASTHMA
     Dosage: 1 DOSAGE FORM, QD
     Route: 065
  2. SPIRIVA [Suspect]
     Active Substance: TIOTROPIUM BROMIDE MONOHYDRATE
     Indication: ASTHMA
     Dosage: 2 DOSAGE FORM, QD
     Route: 065
  3. ADVAIR HFA [Suspect]
     Active Substance: FLUTICASONE PROPIONATE\SALMETEROL XINAFOATE
     Indication: ASTHMA
     Dosage: 1 DOSAGE FORM, BID
  4. BREO ELLIPTA [Suspect]
     Active Substance: FLUTICASONE FUROATE\VILANTEROL TRIFENATATE
     Indication: ASTHMA
     Dosage: 1 DOSAGE FORM, QD
     Route: 065
  5. VENLAFAXINE [Suspect]
     Active Substance: VENLAFAXINE HYDROCHLORIDE
     Indication: ASTHMA
     Dosage: UNK
     Route: 065
  6. TIOTROPIUM BROMIDE [Suspect]
     Active Substance: TIOTROPIUM BROMIDE
     Indication: ASTHMA
     Dosage: 2 DOSAGE FORM, QD
     Route: 065
  7. NUCALA [Suspect]
     Active Substance: MEPOLIZUMAB
     Indication: ASTHMA
     Dosage: 100 MILLIGRAM
     Route: 042
  8. NUCALA [Suspect]
     Active Substance: MEPOLIZUMAB
     Indication: PRODUCT USED FOR UNKNOWN INDICATION
  9. PULMICORT TURBUHALER [Suspect]
     Active Substance: BUDESONIDE
     Indication: ASTHMA
     Dosage: UNK
     Route: 065
  10. SALBUTAMOL [Suspect]
     Active Substance: ALBUTEROL
     Indication: ASTHMA
     Dosage: UNK, QID
  11. FLOVENT [Suspect]
     Active Substance: FLUTICASONE PROPIONATE
     Indication: ASTHMA
     Dosage: UNK
     Route: 065

REACTIONS (21)
  - Joint injury [Recovered/Resolved]
  - Middle insomnia [Recovered/Resolved]
  - Nasal disorder [Recovered/Resolved]
  - Wheezing [Recovered/Resolved]
  - Asthma [Recovered/Resolved]
  - Product use in unapproved indication [Recovered/Resolved]
  - Productive cough [Recovered/Resolved]
  - Drug hypersensitivity [Recovered/Resolved]
  - Arthralgia [Recovered/Resolved]
  - Eosinophil count increased [Recovered/Resolved]
  - Obstructive airways disorder [Recovered/Resolved]
  - Therapeutic product effect incomplete [Recovered/Resolved]
  - Dyspnoea [Recovered/Resolved]
  - Loss of personal independence in daily activities [Recovered/Resolved]
  - Pain [Recovered/Resolved]
  - Areflexia [Recovered/Resolved]
  - Musculoskeletal stiffness [Recovered/Resolved]
  - Neck pain [Recovered/Resolved]
  - Condition aggravated [Recovered/Resolved]
  - Dyspnoea exertional [Recovered/Resolved]
  - Forced expiratory volume increased [Recovered/Resolved]
